FAERS Safety Report 25056972 (Version 2)
Quarter: 2025Q3

REPORT INFORMATION
  Report Type: Spontaneous
  Country: US (occurrence: US)
  Receive Date: 20250310
  Receipt Date: 20250826
  Transmission Date: 20251021
  Serious: No
  Sender: CHATTEM
  Company Number: US-OPELLA-2024OHG008542

PATIENT
  Sex: Male

DRUGS (1)
  1. NASACORT ALLERGY 24HR [Suspect]
     Active Substance: TRIAMCINOLONE ACETONIDE
     Indication: Sinus disorder

REACTIONS (4)
  - Drug ineffective [Unknown]
  - Product physical consistency issue [Unknown]
  - Product delivery mechanism issue [Unknown]
  - No adverse event [Unknown]
